FAERS Safety Report 5854431-3 (Version None)
Quarter: 2008Q3

REPORT INFORMATION
  Report Type: 
  Country: None (occurrence: None)
  Receive Date: 20080822
  Receipt Date: 20080813
  Transmission Date: 20090109
  Serious: Yes (Other)
  Sender: FDA-Public Use
  Company Number: ES-PFIZER INC-2008067712

PATIENT
  Age: 47 Year
  Sex: Male

DRUGS (1)
  1. DOSTINEX [Suspect]
     Indication: HYPERPROLACTINAEMIA
     Dosage: FREQ:WEEKLY

REACTIONS (3)
  - AORTIC VALVE PROLAPSE [None]
  - MITRAL VALVE PROLAPSE [None]
  - OEDEMA [None]
